FAERS Safety Report 4319836-0 (Version None)
Quarter: 2004Q1

REPORT INFORMATION
  Report Type: 
  Country: None (occurrence: None)
  Receive Date: 20040319
  Receipt Date: 20040308
  Transmission Date: 20041129
  Serious: Yes (Hospitalization)
  Sender: FDA-Public Use
  Company Number: PHRM2004FR01099

PATIENT
  Age: 89 Year
  Sex: Female

DRUGS (6)
  1. COTAREG [Suspect]
     Indication: HYPERTENSION
     Dosage: 1 DF, QD
     Route: 048
     Dates: end: 20031211
  2. LORAZEPAM [Suspect]
     Dosage: 1 DF, QD
     Route: 048
  3. TENORMIN [Suspect]
     Indication: HYPERTENSION
     Dosage: 1 DF, QD
  4. AMLOR [Suspect]
     Indication: HYPERTENSION
     Dosage: 10 MG, QD
     Route: 048
     Dates: end: 20031208
  5. MOPRAL [Concomitant]
     Dosage: 10 MG, QD
     Route: 048
     Dates: end: 20031208
  6. BRICANYL [Concomitant]
     Dosage: 10 MG, DAILY
     Route: 048

REACTIONS (3)
  - DRUG INTERACTION [None]
  - FALL [None]
  - ORTHOSTATIC HYPOTENSION [None]
